FAERS Safety Report 19641714 (Version 1)
Quarter: 2021Q3

REPORT INFORMATION
  Report Type: Spontaneous
  Country: US (occurrence: US)
  Receive Date: 20210730
  Receipt Date: 20210730
  Transmission Date: 20211014
  Serious: No
  Sender: FDA-Public Use
  Company Number: US-BAYER-2021-164911

PATIENT
  Sex: Male

DRUGS (1)
  1. NUBEQA [Suspect]
     Active Substance: DAROLUTAMIDE
     Dosage: UNK

REACTIONS (4)
  - Fatigue [None]
  - Exercise tolerance decreased [None]
  - Drug ineffective [None]
  - Prostatic specific antigen increased [None]

NARRATIVE: CASE EVENT DATE: 2021
